FAERS Safety Report 9115931 (Version 2)
Quarter: 2013Q3

REPORT INFORMATION
  Report Type: Spontaneous
  Country: FR (occurrence: FR)
  Receive Date: 20130225
  Receipt Date: 20130823
  Transmission Date: 20140515
  Serious: Yes (Hospitalization)
  Sender: FDA-Public Use
  Company Number: FR-PFIZER INC-2013062225

PATIENT
  Age: 46 Year
  Sex: Male

DRUGS (2)
  1. DALACINE [Suspect]
     Dosage: 1800 MG, 1X/DAY
     Route: 042
     Dates: start: 20111026, end: 20111204
  2. TEICOPLANIN [Concomitant]
     Dosage: 400 MG, 1X/DAY
     Route: 042
     Dates: start: 20111114, end: 20111204

REACTIONS (2)
  - Drug reaction with eosinophilia and systemic symptoms [Recovered/Resolved]
  - Skin test positive [Recovered/Resolved]
